FAERS Safety Report 21074658 (Version 1)
Quarter: 2022Q3

REPORT INFORMATION
  Report Type: Spontaneous
  Country: US (occurrence: None)
  Receive Date: 20220713
  Receipt Date: 20220713
  Transmission Date: 20221026
  Serious: No
  Sender: FDA-Public Use
  Company Number: 2022A243703

PATIENT
  Sex: Male
  Weight: 66.7 kg

DRUGS (2)
  1. FARXIGA [Suspect]
     Active Substance: DAPAGLIFLOZIN PROPANEDIOL
     Indication: Coronary artery disease
     Route: 048
     Dates: start: 20220619
  2. ENTRESTO [Concomitant]
     Active Substance: SACUBITRIL\VALSARTAN
     Dosage: 24-26MG

REACTIONS (2)
  - Cardiac disorder [Unknown]
  - Pain [Not Recovered/Not Resolved]
